FAERS Safety Report 10404908 (Version 3)
Quarter: 2018Q2

REPORT INFORMATION
  Report Type: Spontaneous
  Country: US (occurrence: US)
  Receive Date: 20140825
  Receipt Date: 20180605
  Transmission Date: 20180711
  Serious: Yes (Hospitalization)
  Sender: FDA-Public Use
  Company Number: US-ROCHE-1453255

PATIENT
  Age: 58 Year
  Sex: Female
  Weight: 55.9 kg

DRUGS (13)
  1. KEFLEX [Concomitant]
     Active Substance: CEPHALEXIN
  2. VALTREX [Concomitant]
     Active Substance: VALACYCLOVIR HYDROCHLORIDE
     Route: 048
     Dates: start: 20140713
  3. DEXAMETHASONE. [Concomitant]
     Active Substance: DEXAMETHASONE
     Indication: HYPERSENSITIVITY
     Route: 048
     Dates: start: 20140627
  4. ASPIRIN. [Concomitant]
     Active Substance: ASPIRIN
     Dosage: 2 TABS PRN
     Route: 065
  5. REPREXAIN [Concomitant]
     Active Substance: HYDROCODONE BITARTRATE\IBUPROFEN
     Indication: MIGRAINE
     Dosage: PRN
     Route: 048
     Dates: start: 2011
  6. PACLITAXEL. [Concomitant]
     Active Substance: PACLITAXEL
     Indication: BREAST CANCER
     Route: 042
     Dates: start: 20140606, end: 20140815
  7. INDERAL [Concomitant]
     Active Substance: PROPRANOLOL HYDROCHLORIDE
     Indication: MIGRAINE
     Route: 048
     Dates: start: 1994
  8. EXCEDRIN EXTRA STRENGTH [Concomitant]
     Active Substance: ACETAMINOPHEN\ASPIRIN\CAFFEINE
     Indication: MIGRAINE
     Dosage: 1-2 TABLSTS?PRN
     Route: 048
     Dates: start: 1994
  9. EXCEDRIN EXTRA STRENGTH [Concomitant]
     Active Substance: ACETAMINOPHEN\ASPIRIN\CAFFEINE
     Indication: HEADACHE
  10. VALTREX [Concomitant]
     Active Substance: VALACYCLOVIR HYDROCHLORIDE
     Indication: GENITAL HERPES SIMPLEX
     Route: 048
     Dates: start: 20140808
  11. HSV-1 THYMIDINE KINASE [Concomitant]
     Dosage: GENITAL
     Route: 065
     Dates: start: 20140713
  12. PERJETA [Suspect]
     Active Substance: PERTUZUMAB
     Indication: BREAST CANCER
     Route: 042
     Dates: start: 20140606, end: 20140808
  13. HERCEPTIN [Suspect]
     Active Substance: TRASTUZUMAB
     Indication: BREAST CANCER
     Route: 042
     Dates: start: 20140606

REACTIONS (6)
  - Device related infection [Recovered/Resolved]
  - Catheter site erythema [Unknown]
  - Erythema [Unknown]
  - Cellulitis [Recovering/Resolving]
  - Blood culture positive [Unknown]
  - Catheter site pain [Unknown]

NARRATIVE: CASE EVENT DATE: 20140818
